FAERS Safety Report 4709676-2 (Version None)
Quarter: 2005Q2

REPORT INFORMATION
  Report Type: 
  Country: None (occurrence: None)
  Receive Date: 20050629
  Receipt Date: 20050506
  Transmission Date: 20051028
  Serious: No
  Sender: FDA-Public Use
  Company Number: 05P-163-0299909-00

PATIENT
  Age: 56 Year
  Sex: Female
  Weight: 81.6475 kg

DRUGS (9)
  1. HUMIRA [Suspect]
     Indication: RHEUMATOID ARTHRITIS
     Dosage: 40 MG, 1 IN 2 WK, SUBCUTANEOUS
     Route: 058
     Dates: start: 20041101
  2. ATENOLOL [Concomitant]
  3. NIFEDIPINE [Concomitant]
  4. ASPIRIN [Concomitant]
  5. TAGAMET [Concomitant]
  6. FLUOXETINE HCL [Concomitant]
  7. CALCIUM CARBONATE [Concomitant]
  8. SLOW IRON [Concomitant]
  9. ETODOLAC [Concomitant]

REACTIONS (1)
  - GINGIVAL SWELLING [None]
